FAERS Safety Report 23897454 (Version 3)
Quarter: 2024Q3

REPORT INFORMATION
  Report Type: Report from Study
  Country: CA (occurrence: CA)
  Receive Date: 20240524
  Receipt Date: 20240710
  Transmission Date: 20241016
  Serious: Yes (Other)
  Sender: JOHNSON AND JOHNSON
  Company Number: CA-JNJFOC-20221138270

PATIENT
  Age: 20 Year
  Sex: Male
  Weight: 53 kg

DRUGS (4)
  1. REMICADE [Suspect]
     Active Substance: INFLIXIMAB
     Indication: Colitis ulcerative
     Dosage: VIAL ROUNDED UP TO 300 MG FOR INDUCTION.?DOSE RECEIVED ON: 20-MAR-2023.
     Route: 041
     Dates: start: 20221208
  2. REMICADE [Suspect]
     Active Substance: INFLIXIMAB
     Dosage: VIAL ROUNDED UP TO 400 MG FOR 61 KG.
     Route: 041
  3. REMICADE [Suspect]
     Active Substance: INFLIXIMAB
     Dosage: DOSE: 300 MG.
     Route: 041
  4. REMICADE [Suspect]
     Active Substance: INFLIXIMAB
     Route: 041
     Dates: start: 20240323

REACTIONS (5)
  - Colitis ulcerative [Unknown]
  - Inadequate diet [Unknown]
  - General physical health deterioration [Unknown]
  - Drug level decreased [Unknown]
  - Off label use [Unknown]

NARRATIVE: CASE EVENT DATE: 20240101
